FAERS Safety Report 4752679-2 (Version None)
Quarter: 2005Q3

REPORT INFORMATION
  Report Type: 
  Country: None (occurrence: None)
  Receive Date: 20050823
  Receipt Date: 20050811
  Transmission Date: 20060218
  Serious: Yes (Death, Hospitalization)
  Sender: FDA-Public Use
  Company Number: E044-316-3572

PATIENT
  Age: 77 Year
  Sex: Male
  Weight: 87 kg

DRUGS (8)
  1. E2020 (DONEPEZIL HYDROCHLORIDE) [Suspect]
     Indication: DEMENTIA
     Dosage: 5 MG, 1 IN 1 D, ORAL
     Route: 048
     Dates: start: 20040720, end: 20040811
  2. E2020 (DONEPEZIL HYDROCHLORIDE) [Suspect]
     Indication: PARKINSON'S DISEASE
     Dosage: 5 MG, 1 IN 1 D, ORAL
     Route: 048
     Dates: start: 20040720, end: 20040811
  3. E2020 (DONEPEZIL HYDROCHLORIDE) [Suspect]
     Indication: DEMENTIA
     Dosage: 5 MG, 1 IN 1 D, ORAL
     Route: 048
     Dates: start: 20040812, end: 20040915
  4. E2020 (DONEPEZIL HYDROCHLORIDE) [Suspect]
     Indication: PARKINSON'S DISEASE
     Dosage: 5 MG, 1 IN 1 D, ORAL
     Route: 048
     Dates: start: 20040812, end: 20040915
  5. E2020 (DONEPEZIL HYDROCHLORIDE) [Suspect]
     Indication: DEMENTIA
     Dosage: 5 MG, 1 IN 1 D, ORAL
     Route: 048
     Dates: start: 20040921, end: 20040922
  6. E2020 (DONEPEZIL HYDROCHLORIDE) [Suspect]
     Indication: PARKINSON'S DISEASE
     Dosage: 5 MG, 1 IN 1 D, ORAL
     Route: 048
     Dates: start: 20040921, end: 20040922
  7. DICLOFENAC (DICLOFENAC) [Concomitant]
  8. MADOPAR (MADOPAR) [Concomitant]

REACTIONS (9)
  - ASPIRATION [None]
  - CLAVICLE FRACTURE [None]
  - CONDITION AGGRAVATED [None]
  - CONSCIOUSNESS FLUCTUATING [None]
  - FALL [None]
  - INSOMNIA [None]
  - LOWER RESPIRATORY TRACT INFECTION [None]
  - PARKINSON'S DISEASE [None]
  - SOMNOLENCE [None]
